FAERS Safety Report 10213943 (Version 1)
Quarter: 2014Q2

REPORT INFORMATION
  Report Type: Spontaneous
  Country: US (occurrence: None)
  Receive Date: 20140602
  Receipt Date: 20140602
  Transmission Date: 20141212
  Serious: No
  Sender: FDA-Public Use
  Company Number: None

PATIENT
  Age: 34 Year
  Sex: Female
  Weight: 55.34 kg

DRUGS (1)
  1. FLUTICASONE PROPIONATE NASAL SPR 50 MCG APOTEX CORP [Suspect]
     Indication: NASAL CONGESTION
     Dosage: 2 SPRAYS EACH NOSTRIL ONCE DAILY INHALATION
     Route: 055
     Dates: start: 20140530, end: 20140530

REACTIONS (10)
  - Anxiety [None]
  - Nervousness [None]
  - Dyspnoea [None]
  - Dyspnoea [None]
  - Palpitations [None]
  - Palpitations [None]
  - Chest pain [None]
  - Throat irritation [None]
  - Headache [None]
  - Nightmare [None]
